FAERS Safety Report 24312725 (Version 1)
Quarter: 2024Q3

REPORT INFORMATION
  Report Type: Spontaneous
  Country: US (occurrence: US)
  Receive Date: 20240912
  Receipt Date: 20240912
  Transmission Date: 20241016
  Serious: No
  Sender: SANOFI AVENTIS
  Company Number: US-SA-2024SA260830

PATIENT
  Age: 87 Year
  Sex: Female

DRUGS (2)
  1. DUPIXENT [Suspect]
     Active Substance: DUPILUMAB
     Indication: Dermatitis atopic
     Dosage: 300 MG, QOW
     Route: 058
     Dates: start: 202301
  2. COUMADIN [Suspect]
     Active Substance: WARFARIN SODIUM
     Indication: Cardiac disorder
     Dosage: UNK

REACTIONS (4)
  - Contusion [Unknown]
  - Sedation [Unknown]
  - Fatigue [Unknown]
  - Pain [Unknown]
